FAERS Safety Report 6085413-7 (Version None)
Quarter: 2009Q1

REPORT INFORMATION
  Report Type: 
  Country: None (occurrence: None)
  Receive Date: 20090220
  Receipt Date: 20090209
  Transmission Date: 20090719
  Serious: Yes (Other)
  Sender: FDA-Public Use
  Company Number: CN-PFIZER INC-2009168426

PATIENT

DRUGS (1)
  1. ZITHROMAX [Suspect]
     Indication: COUGH
     Dosage: 500 MG, 1X/DAY
     Route: 048
     Dates: start: 20090201, end: 20090201

REACTIONS (1)
  - HALLUCINATION, VISUAL [None]
